FAERS Safety Report 20775786 (Version 1)
Quarter: 2022Q2

REPORT INFORMATION
  Report Type: Spontaneous
  Country: ES (occurrence: ES)
  Receive Date: 20220502
  Receipt Date: 20220502
  Transmission Date: 20220721
  Serious: Yes (Disabling)
  Sender: FDA-Public Use
  Company Number: None

PATIENT
  Age: 68 Year
  Sex: Male

DRUGS (1)
  1. ATORVASTATIN CALCIUM [Suspect]
     Active Substance: ATORVASTATIN CALCIUM
     Indication: Metabolic syndrome
     Dosage: UNK
     Route: 048
     Dates: start: 201012, end: 202008

REACTIONS (2)
  - Immune-mediated myositis [Recovering/Resolving]
  - Blood creatine phosphokinase increased [Recovering/Resolving]

NARRATIVE: CASE EVENT DATE: 20200801
